FAERS Safety Report 24810934 (Version 1)
Quarter: 2025Q1

REPORT INFORMATION
  Report Type: Spontaneous
  Country: NL (occurrence: None)
  Receive Date: 20250104
  Receipt Date: 20250104
  Transmission Date: 20250408
  Serious: Yes (Other)
  Sender: FDA-CTU
  Company Number: None

PATIENT
  Age: 40 Year
  Sex: Female
  Weight: 105.4 kg

DRUGS (7)
  1. WEGOVY [Suspect]
     Active Substance: SEMAGLUTIDE
     Indication: Obesity
     Dates: start: 20241216
  2. VITAMINS [Concomitant]
     Active Substance: VITAMINS
  3. VITAMIN B12 [Concomitant]
     Active Substance: CYANOCOBALAMIN
  4. Ashwagandha/Gaba/Bacopa [Concomitant]
  5. MAGNESIUM + VITAMIN C [Concomitant]
  6. OMEGA 3 [Concomitant]
     Active Substance: CAPSAICIN
  7. During menstruation: midol 2 capsules twice a day. [Concomitant]

REACTIONS (3)
  - Menstrual clots [None]
  - Uterine spasm [None]
  - Vulvovaginal discomfort [None]

NARRATIVE: CASE EVENT DATE: 20250102
